FAERS Safety Report 7526122-4 (Version None)
Quarter: 2011Q2

REPORT INFORMATION
  Report Type: 
  Country: None (occurrence: None)
  Receive Date: 20110606
  Receipt Date: 20110527
  Transmission Date: 20111010
  Serious: Yes (Other)
  Sender: FDA-Public Use
  Company Number: US-MERCK-1101USA01417

PATIENT
  Age: 68 Year
  Sex: Female

DRUGS (4)
  1. RECLAST [Suspect]
     Route: 051
     Dates: start: 20081008
  2. ESTRACE [Concomitant]
     Indication: HORMONE THERAPY
     Route: 065
     Dates: start: 19610101
  3. FOSAMAX [Suspect]
     Indication: OSTEOPENIA
     Route: 048
     Dates: start: 19980301, end: 19990304
  4. METHOTREXATE [Suspect]
     Route: 065

REACTIONS (26)
  - ANAEMIA MACROCYTIC [None]
  - BLOOD CHOLESTEROL INCREASED [None]
  - ARTHRALGIA [None]
  - SPINAL COLUMN INJURY [None]
  - GINGIVITIS [None]
  - SPINAL DISORDER [None]
  - SENSITIVITY OF TEETH [None]
  - HYPOKALAEMIA [None]
  - RAYNAUD'S PHENOMENON [None]
  - PERIODONTAL DISEASE [None]
  - MUCOSAL ULCERATION [None]
  - TOOTH DISORDER [None]
  - OESOPHAGEAL DISORDER [None]
  - OSTEONECROSIS OF JAW [None]
  - SKIN CANCER [None]
  - ARTHRITIS [None]
  - PAIN [None]
  - INSOMNIA [None]
  - ORAL INFECTION [None]
  - ANAEMIA [None]
  - DYSPHAGIA [None]
  - LOOSE TOOTH [None]
  - MASTICATION DISORDER [None]
  - HYPERTENSION [None]
  - DENTAL PLAQUE [None]
  - JOINT SWELLING [None]
